FAERS Safety Report 5796390-8 (Version None)
Quarter: 2008Q2

REPORT INFORMATION
  Report Type: 
  Country: None (occurrence: None)
  Receive Date: 20080630
  Receipt Date: 20080630
  Transmission Date: 20081010
  Serious: Yes (Life-Threatening, Hospitalization)
  Sender: FDA-Public Use
  Company Number: None

PATIENT
  Sex: Female
  Weight: 79.4 kg

DRUGS (2)
  1. DEPAKOTE [Suspect]
     Indication: EPILEPSY
     Dosage: DEPAKOTE EVERY 8 HOURS IV
     Route: 042
     Dates: start: 20080626, end: 20080627
  2. NEURONTIN [Suspect]
     Indication: EPILEPSY
     Dosage: NEURONTIN THREE TIMES DAILY PO
     Route: 048
     Dates: start: 20080626, end: 20080627

REACTIONS (11)
  - ALANINE AMINOTRANSFERASE INCREASED [None]
  - BLOOD POTASSIUM DECREASED [None]
  - DEHYDRATION [None]
  - DIZZINESS [None]
  - EPILEPSY [None]
  - HYPERAMMONAEMIC ENCEPHALOPATHY [None]
  - MENTAL DISORDER [None]
  - MENTAL STATUS CHANGES [None]
  - NAUSEA [None]
  - THERAPEUTIC AGENT TOXICITY [None]
  - VOMITING [None]
